FAERS Safety Report 17317758 (Version 1)
Quarter: 2020Q1

REPORT INFORMATION
  Report Type: Spontaneous
  Country: US (occurrence: US)
  Receive Date: 20200124
  Receipt Date: 20200124
  Transmission Date: 20200409
  Serious: No
  Sender: FDA-Public Use
  Company Number: US-OTSUKA-2019_039119

PATIENT
  Age: 19 Year
  Sex: Male

DRUGS (1)
  1. REXULTI [Suspect]
     Active Substance: BREXPIPRAZOLE
     Indication: ANTIDEPRESSANT THERAPY
     Dosage: 0.25 MG, UNK
     Route: 065

REACTIONS (3)
  - Restlessness [Recovering/Resolving]
  - Underdose [Unknown]
  - Musculoskeletal stiffness [Recovering/Resolving]
